FAERS Safety Report 9768286 (Version 1)
Quarter: 2013Q4

REPORT INFORMATION
  Report Type: Report from Study
  Country: US (occurrence: US)
  Receive Date: 20131217
  Receipt Date: 20131217
  Transmission Date: 20140711
  Serious: Yes (Other)
  Sender: FDA-Public Use
  Company Number: US-TEVA-450518USA

PATIENT
  Sex: Female

DRUGS (1)
  1. CLARAVIS [Suspect]

REACTIONS (2)
  - Dyspnoea [Unknown]
  - Tachycardia [Unknown]
